FAERS Safety Report 12141206 (Version 1)
Quarter: 2016Q1

REPORT INFORMATION
  Report Type: Spontaneous
  Country: US (occurrence: None)
  Receive Date: 20160302
  Receipt Date: 20160302
  Transmission Date: 20160526
  Serious: No
  Sender: FDA-Public Use
  Company Number: None

PATIENT
  Age: 92 Year
  Sex: Male
  Weight: 58.97 kg

DRUGS (11)
  1. PRAVASTATIN [Concomitant]
     Active Substance: PRAVASTATIN\PRAVASTATIN SODIUM
  2. OMEPRAZOLE. [Concomitant]
     Active Substance: OMEPRAZOLE
  3. MELATONIN [Concomitant]
     Active Substance: MELATONIN
  4. DOXAZOSIN MESYLATE 4MG TABS LEG APOTEX CORP [Suspect]
     Active Substance: DOXAZOSIN MESYLATE
     Indication: HYPERTENSION
     Dosage: 1/2 TAB MIDDLE OF NIGHT + PRESSURE STILL ELEVATE
     Dates: start: 20160209, end: 20160212
  5. ENALAPRIL [Concomitant]
     Active Substance: ENALAPRIL
  6. ALPRAZOLAM. [Concomitant]
     Active Substance: ALPRAZOLAM
  7. TAMSULOSIN [Concomitant]
     Active Substance: TAMSULOSIN
  8. MIRTAZAPINE. [Concomitant]
     Active Substance: MIRTAZAPINE
  9. FINASTERIDE. [Concomitant]
     Active Substance: FINASTERIDE
  10. METOPROLOL. [Concomitant]
     Active Substance: METOPROLOL
  11. METAMUCIL [Concomitant]
     Active Substance: PLANTAGO SEED

REACTIONS (3)
  - Peripheral swelling [None]
  - Middle insomnia [None]
  - Blood pressure increased [None]

NARRATIVE: CASE EVENT DATE: 20160209
